FAERS Safety Report 21236683 (Version 1)
Quarter: 2022Q3

REPORT INFORMATION
  Report Type: Other
  Country: CA (occurrence: CA)
  Receive Date: 20220822
  Receipt Date: 20220822
  Transmission Date: 20221027
  Serious: Yes (Hospitalization)
  Sender: FDA-Public Use
  Company Number: CA-APOTEX-2022AP011335

PATIENT
  Sex: Female

DRUGS (1)
  1. QUINAPRIL [Suspect]
     Active Substance: QUINAPRIL
     Indication: Product used for unknown indication
     Dosage: UNK
     Route: 065

REACTIONS (6)
  - Abdominal pain upper [Unknown]
  - Malaise [Unknown]
  - Pain [Unknown]
  - Weight decreased [Unknown]
  - Nausea [Unknown]
  - Therapeutic product effect incomplete [Unknown]
